FAERS Safety Report 5824193-4 (Version None)
Quarter: 2008Q3

REPORT INFORMATION
  Report Type: 
  Country: None (occurrence: None)
  Receive Date: 20080728
  Receipt Date: 20080710
  Transmission Date: 20090109
  Serious: Yes (Hospitalization)
  Sender: FDA-Public Use
  Company Number: US-BAYER-200714902GDS

PATIENT
  Age: 60 Year
  Sex: Female
  Weight: 63 kg

DRUGS (8)
  1. ACARBOSE [Suspect]
     Indication: TYPE 2 DIABETES MELLITUS
     Dosage: UNIT DOSE: 50 MG
     Route: 048
     Dates: start: 20070628, end: 20070726
  2. AVANDAMET [Suspect]
     Indication: TYPE 2 DIABETES MELLITUS
     Dosage: UNIT DOSE: 1004 MG
     Route: 048
     Dates: start: 20070726, end: 20070729
  3. GLIMEPIRIDE [Suspect]
     Indication: TYPE 2 DIABETES MELLITUS
     Dosage: UNIT DOSE: 9 MG
     Route: 048
     Dates: start: 20030101, end: 20070606
  4. GLIMEPIRIDE [Suspect]
     Dosage: UNIT DOSE: 6 MG
     Route: 048
     Dates: start: 20070606, end: 20070729
  5. GLIMEPIRIDE [Suspect]
     Dosage: UNIT DOSE: 6 MG
     Route: 048
     Dates: start: 20070801, end: 20071204
  6. BIPRETERAX [Concomitant]
     Indication: DRUG USE FOR UNKNOWN INDICATION
     Route: 048
     Dates: start: 20030101
  7. SIMVASTATIN [Concomitant]
     Indication: DRUG USE FOR UNKNOWN INDICATION
     Route: 048
     Dates: start: 20030101
  8. METFORMIN HCL [Concomitant]
     Indication: DRUG USE FOR UNKNOWN INDICATION
     Route: 048
     Dates: start: 20030101, end: 20070726

REACTIONS (1)
  - PANCREATITIS ACUTE [None]
